FAERS Safety Report 24856203 (Version 2)
Quarter: 2025Q1

REPORT INFORMATION
  Report Type: Spontaneous
  Country: US (occurrence: US)
  Receive Date: 20250117
  Receipt Date: 20250117
  Transmission Date: 20250408
  Serious: Yes (Life-Threatening, Hospitalization)
  Sender: PFIZER
  Company Number: US-PFIZER INC-PV202500003889

PATIENT
  Age: 42 Year
  Sex: Female

DRUGS (2)
  1. FLUCONAZOLE [Suspect]
     Active Substance: FLUCONAZOLE
  2. CEFAZOLIN [Suspect]
     Active Substance: CEFAZOLIN
     Indication: Klebsiella infection

REACTIONS (1)
  - Pathogen resistance [Unknown]
